FAERS Safety Report 24099532 (Version 2)
Quarter: 2024Q3

REPORT INFORMATION
  Report Type: Report from Study
  Country: US (occurrence: US)
  Receive Date: 20240716
  Receipt Date: 20240722
  Transmission Date: 20241016
  Serious: Yes (Hospitalization, Other)
  Sender: ABBVIE
  Company Number: US-ABBVIE-5838650

PATIENT
  Sex: Female
  Weight: 79.378 kg

DRUGS (5)
  1. CREON [Suspect]
     Active Substance: PANCRELIPASE AMYLASE\PANCRELIPASE LIPASE\PANCRELIPASE PROTEASE
     Indication: Pancreatic disorder
     Route: 048
     Dates: start: 20230708
  2. IMODIUM [Concomitant]
     Active Substance: LOPERAMIDE HYDROCHLORIDE
     Indication: Diarrhoea
  3. UNISOM SLEEPTABS [Concomitant]
     Active Substance: DOXYLAMINE SUCCINATE
     Indication: Sleep disorder
  4. VALIUM [Concomitant]
     Active Substance: DIAZEPAM
     Indication: Neoplasm malignant
  5. MELATONIN [Concomitant]
     Active Substance: MELATONIN
     Indication: Sleep disorder

REACTIONS (10)
  - Hernia [Recovered/Resolved]
  - Vomiting [Recovered/Resolved]
  - Dysphagia [Recovering/Resolving]
  - Hypoaesthesia oral [Not Recovered/Not Resolved]
  - Increased upper airway secretion [Unknown]
  - Intervertebral disc protrusion [Not Recovered/Not Resolved]
  - Choking [Recovered/Resolved]
  - Diarrhoea [Recovering/Resolving]
  - Pancreatic cyst [Not Recovered/Not Resolved]
  - Sciatica [Unknown]

NARRATIVE: CASE EVENT DATE: 20230101
